FAERS Safety Report 11297380 (Version 1)
Quarter: 2015Q3

REPORT INFORMATION
  Report Type: Spontaneous
  Country: US (occurrence: US)
  Receive Date: 20150722
  Receipt Date: 20150722
  Transmission Date: 20151125
  Serious: No
  Sender: FDA-Public Use
  Company Number: US-ELI_LILLY_AND_COMPANY-US200802006926

PATIENT
  Sex: Female

DRUGS (2)
  1. HUMATROPE [Suspect]
     Active Substance: SOMATROPIN
  2. HUMATROPE [Suspect]
     Active Substance: SOMATROPIN
     Indication: THYROIDITIS
     Dates: start: 2004

REACTIONS (7)
  - Arthropod bite [Not Recovered/Not Resolved]
  - Visual impairment [Recovered/Resolved]
  - Migraine [Recovered/Resolved]
  - Asthenia [Recovered/Resolved]
  - Memory impairment [Not Recovered/Not Resolved]
  - Weight increased [Not Recovered/Not Resolved]
  - Fatigue [Not Recovered/Not Resolved]

NARRATIVE: CASE EVENT DATE: 2007
